FAERS Safety Report 7879221-1 (Version None)
Quarter: 2011Q4

REPORT INFORMATION
  Report Type: 
  Country: None (occurrence: None)
  Receive Date: 20111101
  Receipt Date: 20111031
  Transmission Date: 20120403
  Serious: Yes (Life-Threatening, Other)
  Sender: FDA-Public Use
  Company Number: JP-PFIZER INC-2011265139

PATIENT
  Age: 32 Year
  Sex: Male

DRUGS (1)
  1. VARENICLINE TARTRATE [Suspect]
     Dosage: UNK
     Route: 048
     Dates: start: 20111012, end: 20111001

REACTIONS (2)
  - LIVER DISORDER [None]
  - JAUNDICE [None]
